FAERS Safety Report 4553755-X (Version None)
Quarter: 2004Q4

REPORT INFORMATION
  Report Type: 
  Country: None (occurrence: None)
  Receive Date: 20041227
  Receipt Date: 20041101
  Transmission Date: 20050328
  Serious: No
  Sender: FDA-Public Use
  Company Number: 04P-163-0279755-00

PATIENT
  Age: 68 Year
  Sex: Female
  Weight: 78.4723 kg

DRUGS (16)
  1. HUMIRA [Suspect]
     Indication: RHEUMATOID ARTHRITIS
     Dosage: 40 MG, 1 IN 2 WK, SUBCUTANEOUS
     Route: 058
     Dates: start: 20030101
  2. ESOMEPRAZOLE [Concomitant]
  3. HYDROTALCITE [Concomitant]
  4. NAPROXEN [Concomitant]
  5. HYDROCHLOROTHIAZIDE [Concomitant]
  6. ATENOLOL [Concomitant]
  7. ESTROGENS CONJUGATED [Concomitant]
  8. DOXEPIN HCL [Concomitant]
  9. CENTRUM [Concomitant]
  10. ASCORBIC ACID [Concomitant]
  11. FERREX [Concomitant]
  12. TEMAZEPAM [Concomitant]
  13. FUROSEMIDE [Concomitant]
  14. ALBUTEROL [Concomitant]
  15. SPIRIVA [Concomitant]
  16. MACROGOL [Concomitant]

REACTIONS (2)
  - INJECTION SITE BURNING [None]
  - JOINT SWELLING [None]
